FAERS Safety Report 7547572-6 (Version None)
Quarter: 2011Q2

REPORT INFORMATION
  Report Type: 
  Country: None (occurrence: None)
  Receive Date: 20110614
  Receipt Date: 20110610
  Transmission Date: 20111010
  Serious: Yes (Death, Life-Threatening)
  Sender: FDA-Public Use
  Company Number: PHHO2004JP18377

PATIENT
  Sex: Female

DRUGS (17)
  1. NEORAL [Suspect]
     Indication: LUNG TRANSPLANT
     Dosage: 100 MG, UNK
     Route: 048
     Dates: start: 20041115
  2. VANCOMYCIN [Suspect]
     Dosage: UNK
     Route: 042
     Dates: start: 20041126
  3. NITROGLYCERIN [Concomitant]
     Dosage: UNK
     Route: 042
     Dates: start: 20041117
  4. DIFLUCAN [Suspect]
     Dosage: UNK
     Route: 042
     Dates: start: 20041117
  5. SOLU-MEDROL [Concomitant]
     Dosage: 500 MG, UNK
     Route: 042
     Dates: start: 20041117
  6. INOVAN [Concomitant]
     Dosage: UNK
     Route: 042
     Dates: start: 20041117
  7. DIPRIVAN [Concomitant]
     Dosage: UNK
     Route: 042
     Dates: start: 20041117
  8. VENOGLOBULIN [Suspect]
     Dosage: UNK
     Route: 042
     Dates: start: 20041117
  9. SIMULECT [Suspect]
     Indication: LUNG TRANSPLANT
     Dosage: 20 MG, ONCE/SINGLE
     Route: 042
     Dates: start: 20041116
  10. SIMULECT [Suspect]
     Dosage: 20 MG, ONCE/SINGLE
     Route: 042
     Dates: start: 20041120
  11. ELASPOL [Concomitant]
     Dosage: UNK
     Route: 042
     Dates: start: 20041117
  12. DOBUTREX [Concomitant]
     Dosage: UNK
     Route: 042
     Dates: start: 20041117
  13. CORETEC [Concomitant]
     Dosage: UNK
     Route: 042
     Dates: start: 20041117
  14. DILTIAZEM HCL [Concomitant]
     Dosage: UNK
     Route: 042
     Dates: start: 20041118
  15. SANDIMMUNE [Suspect]
     Indication: LUNG TRANSPLANT
     Dosage: 48 MG, UNK
     Route: 042
     Dates: start: 20041117
  16. CELLCEPT [Concomitant]
     Indication: LUNG TRANSPLANT
     Dosage: 500 MG, UNK
     Route: 048
     Dates: start: 20041117
  17. ALPROSTADIL [Concomitant]
     Dosage: UNK
     Route: 042
     Dates: start: 20041117

REACTIONS (6)
  - PULMONARY OEDEMA [None]
  - LUNG TRANSPLANT REJECTION [None]
  - HAEMORRHAGE [None]
  - GRAFT DYSFUNCTION [None]
  - MULTI-ORGAN FAILURE [None]
  - RENAL FAILURE [None]
